FAERS Safety Report 22296720 (Version 5)
Quarter: 2023Q2

REPORT INFORMATION
  Report Type: Spontaneous
  Country: CO (occurrence: CO)
  Receive Date: 20230508
  Receipt Date: 20230619
  Transmission Date: 20230722
  Serious: Yes (Other)
  Sender: FDA-Public Use
  Company Number: CO-SA-SAC20230504000696

PATIENT
  Age: 11 Year
  Sex: Female
  Weight: 44 kg

DRUGS (4)
  1. SABRIL [Suspect]
     Active Substance: VIGABATRIN
     Indication: Seizure
     Dosage: 500 MG, Q4H
     Route: 048
     Dates: start: 2018, end: 2018
  2. SABRIL [Suspect]
     Active Substance: VIGABATRIN
     Dosage: 1000 MG, BID
     Route: 048
     Dates: start: 202211, end: 20230403
  3. SABRIL [Suspect]
     Active Substance: VIGABATRIN
     Dosage: 500 MG, Q6H
     Route: 048
     Dates: start: 2018, end: 20230403
  4. CLONAZEPAM [Suspect]
     Active Substance: CLONAZEPAM
     Indication: Seizure cluster
     Dosage: 5 GTT DROPS
     Route: 065
     Dates: start: 20230530

REACTIONS (7)
  - Seizure [Not Recovered/Not Resolved]
  - Product dose omission issue [Not Recovered/Not Resolved]
  - Seizure cluster [Not Recovered/Not Resolved]
  - Vertigo [Recovered/Resolved]
  - Nausea [Recovered/Resolved]
  - Dizziness [Recovered/Resolved]
  - Vomiting [Recovered/Resolved]
